FAERS Safety Report 18335922 (Version 1)
Quarter: 2020Q4

REPORT INFORMATION
  Report Type: Spontaneous
  Country: PT (occurrence: PT)
  Receive Date: 20201001
  Receipt Date: 20201001
  Transmission Date: 20210113
  Serious: Yes (Other)
  Sender: FDA-Public Use
  Company Number: PT-AMGEN-PRTSP2020155970

PATIENT
  Age: 42 Year
  Sex: Female
  Weight: 79 kg

DRUGS (6)
  1. BEVACIZUMAB. [Suspect]
     Active Substance: BEVACIZUMAB
     Dosage: UNK
     Route: 065
     Dates: start: 20200717
  2. OXALIPLATIN. [Concomitant]
     Active Substance: OXALIPLATIN
     Indication: INTESTINAL ADENOCARCINOMA
     Dosage: CAPOX (X1) -} FOLFOX (X10)
     Dates: start: 202001, end: 20200618
  3. BEVACIZUMAB. [Suspect]
     Active Substance: BEVACIZUMAB
     Indication: METASTASES TO LIVER
     Dosage: FOLFIRI + BEVACIZUMAB ;ONGOING, UNK
     Route: 065
     Dates: start: 202001
  4. CAPECITABINE. [Suspect]
     Active Substance: CAPECITABINE
     Indication: METASTASES TO LIVER
     Dosage: UNK
     Route: 065
     Dates: start: 202001, end: 20200618
  5. FOLFIRI [Concomitant]
     Active Substance: FLUOROURACIL\IRINOTECAN\LEUCOVORIN
     Dosage: UNK
     Dates: start: 20200717, end: 20200731
  6. FOLFIRI [Concomitant]
     Active Substance: FLUOROURACIL\IRINOTECAN\LEUCOVORIN
     Indication: METASTASES TO LIVER
     Dosage: FOLFIRI + BEVACIZUMAB ;ONGOING, UNK
     Dates: start: 2020

REACTIONS (17)
  - Neoplasm recurrence [Not Recovered/Not Resolved]
  - Drug resistance [Unknown]
  - Flank pain [Unknown]
  - Abdominal distension [Not Recovered/Not Resolved]
  - Malignant gastrointestinal obstruction [Not Recovered/Not Resolved]
  - Metastases to peritoneum [Not Recovered/Not Resolved]
  - Carcinoembryonic antigen increased [Unknown]
  - Asthenia [Unknown]
  - Musculoskeletal chest pain [Unknown]
  - Metastases to peritoneum [Not Recovered/Not Resolved]
  - Tumour obstruction [Unknown]
  - Vomiting [Not Recovered/Not Resolved]
  - Nausea [Not Recovered/Not Resolved]
  - Metastases to liver [Unknown]
  - Pain [Unknown]
  - Metastases to muscle [Unknown]
  - Proctalgia [Unknown]

NARRATIVE: CASE EVENT DATE: 2020
